FAERS Safety Report 9639017 (Version 1)
Quarter: 2013Q4

REPORT INFORMATION
  Report Type: Spontaneous
  Country: PL (occurrence: PL)
  Receive Date: 20131022
  Receipt Date: 20131022
  Transmission Date: 20140711
  Serious: Yes (Life-Threatening)
  Sender: FDA-Public Use
  Company Number: PL-JNJFOC-20131009673

PATIENT
  Age: 30 Year
  Sex: Female

DRUGS (2)
  1. RISPOLEPT [Suspect]
     Indication: PRODUCT USED FOR UNKNOWN INDICATION
     Dosage: 10 TO 12 TABLETS
     Route: 048
     Dates: start: 20121002
  2. POLPRAZOL [Suspect]
     Indication: PRODUCT USED FOR UNKNOWN INDICATION
     Route: 065
     Dates: start: 20121002

REACTIONS (2)
  - Suicide attempt [Unknown]
  - Intentional drug misuse [Unknown]
